FAERS Safety Report 10342209 (Version 1)
Quarter: 2014Q3

REPORT INFORMATION
  Report Type: Spontaneous
  Country: US (occurrence: None)
  Receive Date: 20140723
  Receipt Date: 20140723
  Transmission Date: 20150326
  Serious: No
  Sender: FDA-Public Use
  Company Number: FK201402841

PATIENT
  Age: 80 Year
  Sex: Female

DRUGS (5)
  1. METHOTREXATE [Suspect]
     Active Substance: METHOTREXATE
     Indication: RHEUMATOID ARTHRITIS
  2. AMOXICILLIN-CLAVULINATE [Concomitant]
  3. VALSARTAN/HYDROCHLOROTHIAZIDE (CO-DOIVAN) [Concomitant]
  4. PREDNISONE (PREDNISONE) [Concomitant]
     Active Substance: PREDNISONE
  5. CACLIUM SUPPLEMENT (CALCIUM) [Concomitant]

REACTIONS (2)
  - Rheumatoid vasculitis [None]
  - Rheumatoid nodule [None]
